FAERS Safety Report 5292630-2 (Version None)
Quarter: 2007Q2

REPORT INFORMATION
  Report Type: 
  Country: None (occurrence: None)
  Receive Date: 20070404
  Receipt Date: 20070321
  Transmission Date: 20071010
  Serious: Yes (Death)
  Sender: FDA-Public Use
  Company Number: S07-UKI-00796-01

PATIENT
  Sex: Female

DRUGS (7)
  1. CITALOPRAM HYDROBROMIDE [Suspect]
  2. PAROXETINE HCL [Suspect]
     Dosage: 20 MG QD PO
     Route: 048
     Dates: start: 20010101, end: 20010101
  3. PAROXETINE HCL [Suspect]
     Dosage: 30 MG QD PO
     Route: 048
     Dates: start: 20010101, end: 20011101
  4. PAROXETINE HCL [Suspect]
     Dosage: 15 MG QD PO
     Route: 048
     Dates: start: 20011101, end: 20010101
  5. PAROXETINE HCL [Suspect]
     Dosage: 30 MG QD PO
     Route: 048
     Dates: start: 20010101, end: 20020201
  6. VENLAFAXINE HCL [Concomitant]
  7. PAROXETINE HCL [Suspect]
     Dosage: 30 MG QD PO
     Route: 048
     Dates: start: 20010101, end: 20020201

REACTIONS (11)
  - ABORTION INDUCED [None]
  - APATHY [None]
  - APPETITE DISORDER [None]
  - DRUG EXPOSURE DURING PREGNANCY [None]
  - DRUG WITHDRAWAL SYNDROME [None]
  - INTENTIONAL OVERDOSE [None]
  - IRRITABILITY [None]
  - MENTAL DISORDER [None]
  - SUICIDE ATTEMPT [None]
  - TEARFULNESS [None]
  - WEIGHT FLUCTUATION [None]
